FAERS Safety Report 10435022 (Version 1)
Quarter: 2014Q3

REPORT INFORMATION
  Report Type: Spontaneous
  Country: US (occurrence: None)
  Receive Date: 20140815
  Receipt Date: 20140815
  Transmission Date: 20150326
  Serious: No
  Sender: FDA-Public Use
  Company Number: 2014TUS003314

PATIENT

DRUGS (1)
  1. BRINTELLIX [Suspect]
     Active Substance: VORTIOXETINE HYDROBROMIDE
     Route: 048

REACTIONS (3)
  - Feeling abnormal [None]
  - Fatigue [None]
  - Apathy [None]
